FAERS Safety Report 6610389-0 (Version None)
Quarter: 2010Q1

REPORT INFORMATION
  Report Type: 
  Country: None (occurrence: None)
  Receive Date: 20100302
  Receipt Date: 20100127
  Transmission Date: 20100710
  Serious: No
  Sender: FDA-Public Use
  Company Number: US-BAYER-201012527NA

PATIENT
  Age: 87 Year
  Sex: Female

DRUGS (1)
  1. AVELOX [Suspect]
     Indication: INFECTION
     Dosage: TOTAL DAILY DOSE: 400 MG  UNIT DOSE: 400 MG

REACTIONS (1)
  - ADVERSE DRUG REACTION [None]
